FAERS Safety Report 10239916 (Version 1)
Quarter: 2014Q2

REPORT INFORMATION
  Report Type: Spontaneous
  Country: US (occurrence: US)
  Receive Date: 20140616
  Receipt Date: 20140616
  Transmission Date: 20141212
  Serious: Yes (Hospitalization)
  Sender: FDA-Public Use
  Company Number: US-GILEAD-2014-0105262

PATIENT
  Sex: Female

DRUGS (4)
  1. LETAIRIS [Suspect]
     Indication: PULMONARY ARTERIAL HYPERTENSION
     Dosage: 10 MG, QD
     Route: 065
     Dates: start: 20120130
  2. FUROSEMIDE [Concomitant]
  3. LEVOTHYROXINE [Concomitant]
  4. ALLOPURINOL [Concomitant]

REACTIONS (1)
  - Fluid retention [Not Recovered/Not Resolved]
